FAERS Safety Report 6197006-1 (Version None)
Quarter: 2009Q2

REPORT INFORMATION
  Report Type: 
  Country: None (occurrence: None)
  Receive Date: 20090520
  Receipt Date: 20090508
  Transmission Date: 20091009
  Serious: Yes (Other)
  Sender: FDA-Public Use
  Company Number: AU-PFIZER INC-2009202811

PATIENT
  Age: 35 Year

DRUGS (3)
  1. ZOLOFT [Suspect]
     Indication: POSTPARTUM DEPRESSION
     Dosage: 150 MG, UNK
     Dates: start: 20090101
  2. OXAZEPAM [Concomitant]
     Dosage: 90 MG, UNK
  3. SEROQUEL [Concomitant]
     Dosage: 25 MG, 1X/DAY, NOCTE

REACTIONS (2)
  - INSOMNIA [None]
  - MYOCLONUS [None]
